FAERS Safety Report 8904786 (Version 1)
Quarter: 2012Q4

REPORT INFORMATION
  Report Type: Report from Study
  Country: JP (occurrence: JP)
  Receive Date: 20121112
  Receipt Date: 20121112
  Transmission Date: 20130627
  Serious: Yes (Other)
  Sender: FDA-Public Use
  Company Number: JP-PFIZER INC-2012274712

PATIENT
  Age: 52 Year
  Sex: Female

DRUGS (1)
  1. GEMCITABINE HYDROCHLORIDE [Suspect]
     Indication: METASTATIC BREAST CANCER
     Dosage: 1250 mg/m2, cyclic, on days 1 and 8 of a 21-day cycle
     Route: 042

REACTIONS (1)
  - Loss of consciousness [Recovered/Resolved]
